FAERS Safety Report 21051857 (Version 1)
Quarter: 2022Q3

REPORT INFORMATION
  Report Type: Spontaneous
  Country: CN (occurrence: CN)
  Receive Date: 20220707
  Receipt Date: 20220707
  Transmission Date: 20221027
  Serious: Yes (Hospitalization, Other)
  Sender: FDA-Public Use
  Company Number: None

PATIENT
  Age: 65 Year
  Sex: Male
  Weight: 74 kg

DRUGS (9)
  1. CYCLOPHOSPHAMIDE [Suspect]
     Active Substance: CYCLOPHOSPHAMIDE
     Indication: Diffuse large B-cell lymphoma
     Dosage: 1.40,000 G ONCE DAILY, FIRST COURSE, R-CHOP REGIMEN
     Route: 041
     Dates: start: 20220518, end: 20220518
  2. CYCLOPHOSPHAMIDE [Suspect]
     Active Substance: CYCLOPHOSPHAMIDE
     Dosage: QD, DOSE RE-INTRODUCED, R-CHOP REGIMEN, SECOND COURSE
     Route: 041
     Dates: start: 202206
  3. DOXORUBICIN HYDROCHLORIDE [Suspect]
     Active Substance: DOXORUBICIN HYDROCHLORIDE
     Indication: Diffuse large B-cell lymphoma
     Dosage: 98.000000 MG ONCE A DAY, FIRST COURSE, R-CHOP
     Route: 041
     Dates: start: 20220518, end: 20220518
  4. DOXORUBICIN HYDROCHLORIDE [Suspect]
     Active Substance: DOXORUBICIN HYDROCHLORIDE
     Dosage: QD, DOSE RE-INTRODUCED, SECOND COURSE, R-CHOP
     Route: 041
     Dates: start: 202206
  5. VINCRISTINE SULFATE [Suspect]
     Active Substance: VINCRISTINE SULFATE
     Indication: Diffuse large B-cell lymphoma
     Dosage: 2.000000MG ONCE DAILY, FIRST COURSE, R-CHOP
     Route: 041
     Dates: start: 20220518, end: 20220518
  6. VINCRISTINE SULFATE [Suspect]
     Active Substance: VINCRISTINE SULFATE
     Dosage: QD, DOSE RE-INTRODUCED, R-CHOP, SECOND COURSE
     Route: 041
     Dates: start: 202206
  7. RITUXIMAB [Suspect]
     Active Substance: RITUXIMAB
     Indication: Diffuse large B-cell lymphoma
     Dosage: 100.00000MG ONCE DAILY, FIRST COURSE, R-CHOP REGMEN
     Route: 041
     Dates: start: 20220517, end: 20220517
  8. RITUXIMAB [Suspect]
     Active Substance: RITUXIMAB
     Dosage: 600.000000MG ONCE DAILY, FIRST COURSE, R-CHOP REGIMEN
     Route: 041
     Dates: start: 20220517, end: 20220517
  9. RITUXIMAB [Suspect]
     Active Substance: RITUXIMAB
     Dosage: QD, DOSE RE-INTRODUCED, SECOND COURSE, R-CHOP REGIMEN
     Route: 041
     Dates: start: 20220607

REACTIONS (6)
  - Leukoplakia oral [Recovering/Resolving]
  - Myelosuppression [Recovering/Resolving]
  - Asthenia [Recovering/Resolving]
  - Oral fungal infection [Unknown]
  - Temperature intolerance [Recovered/Resolved]
  - Pyrexia [Recovered/Resolved]

NARRATIVE: CASE EVENT DATE: 20220519
